FAERS Safety Report 10220486 (Version 1)
Quarter: 2014Q2

REPORT INFORMATION
  Report Type: Spontaneous
  Country: US (occurrence: US)
  Receive Date: 20140606
  Receipt Date: 20140606
  Transmission Date: 20141212
  Serious: No
  Sender: FDA-Public Use
  Company Number: US-ASTRAZENECA-2014SE36674

PATIENT
  Age: 38 Year
  Sex: Female
  Weight: 56.2 kg

DRUGS (2)
  1. SYMBICORT [Suspect]
     Indication: ASTHMA
     Dosage: 160/4.5 MCG, 2 PUFFS BID
     Route: 055
     Dates: start: 2005
  2. ALBUTEROL [Concomitant]
     Indication: ASTHMA
     Dosage: UNKNOWN PRN
     Route: 055
     Dates: start: 2004

REACTIONS (3)
  - Lung infection [Unknown]
  - Sinusitis [Unknown]
  - Viral infection [Unknown]
